FAERS Safety Report 6435753-4 (Version None)
Quarter: 2009Q4

REPORT INFORMATION
  Report Type: 
  Country: None (occurrence: None)
  Receive Date: 20091111
  Receipt Date: 20091102
  Transmission Date: 20100525
  Serious: Yes (Hospitalization, Other)
  Sender: FDA-Public Use
  Company Number: US-JNJFOC-20091101426

PATIENT
  Sex: Female

DRUGS (7)
  1. DURAGESIC-100 [Suspect]
     Indication: BACK PAIN
     Route: 062
  2. SOMA [Concomitant]
     Indication: MYALGIA
     Route: 048
  3. DILAUDID [Concomitant]
     Indication: PAIN
     Route: 048
  4. RESTORIL [Concomitant]
     Indication: SLEEP DISORDER
     Route: 048
  5. NEXIUM [Concomitant]
     Indication: GASTRIC DISORDER
     Route: 048
  6. PREMPRO [Concomitant]
     Indication: HORMONE LEVEL ABNORMAL
     Dosage: 0.03 MG/ 0.1 MG
     Route: 048
  7. CYMBALTA [Concomitant]
     Indication: DEPRESSION
     Dosage: 0.03 MG/ 0.1 MG
     Route: 048

REACTIONS (15)
  - ARTHROPATHY [None]
  - BACK DISORDER [None]
  - BACK INJURY [None]
  - BODY HEIGHT DECREASED [None]
  - CONSTIPATION [None]
  - DRUG PRESCRIBING ERROR [None]
  - GASTROINTESTINAL PAIN [None]
  - INCORRECT DRUG ADMINISTRATION DURATION [None]
  - INTERVERTEBRAL DISC DEGENERATION [None]
  - KNEE ARTHROPLASTY [None]
  - LUNG DISORDER [None]
  - MIDDLE INSOMNIA [None]
  - NEUROPATHY PERIPHERAL [None]
  - PRODUCT QUALITY ISSUE [None]
  - URINARY INCONTINENCE [None]
